FAERS Safety Report 10525611 (Version 2)
Quarter: 2014Q4

REPORT INFORMATION
  Report Type: Other
  Country: US (occurrence: US)
  Receive Date: 20141017
  Receipt Date: 20141107
  Transmission Date: 20150528
  Serious: Yes (Hospitalization, Other)
  Sender: FDA-Public Use
  Company Number: US-SHIRE-US201406816

PATIENT
  Age: 39 Year
  Sex: Male
  Weight: 101.9 kg

DRUGS (7)
  1. CINRYZE [Suspect]
     Active Substance: HUMAN C1-ESTERASE INHIBITOR
     Indication: PROPHYLAXIS
     Dosage: UNK, OTHER, (1000 UNITS Q 3 DAYS)
     Route: 042
     Dates: start: 20140331, end: 2014
  2. CETIRIZINE [Concomitant]
     Active Substance: CETIRIZINE HYDROCHLORIDE
     Indication: HYPERSENSITIVITY
     Dosage: 10 MG, AS REQ^D
     Route: 048
  3. CINRYZE [Suspect]
     Active Substance: HUMAN C1-ESTERASE INHIBITOR
     Indication: HEREDITARY ANGIOEDEMA
     Dosage: UNK (1500 UNITS), OTHER (EVERY 3 DAYS)
     Route: 042
     Dates: start: 20140912
  4. KLONOPIN [Concomitant]
     Active Substance: CLONAZEPAM
     Indication: PRODUCT USED FOR UNKNOWN INDICATION
     Dosage: 2 MG, 1X/DAY:QD (QHS)
     Route: 048
  5. FIRAZYR [Concomitant]
     Active Substance: ICATIBANT ACETATE
     Indication: HEREDITARY ANGIOEDEMA
     Dosage: UNK, UNKNOWN
     Route: 058
     Dates: start: 2014
  6. ZOLOFT [Concomitant]
     Active Substance: SERTRALINE HYDROCHLORIDE
     Indication: PRODUCT USED FOR UNKNOWN INDICATION
     Dosage: 100 MG, 1X/DAY:QD
     Route: 048
  7. SEROQUEL [Concomitant]
     Active Substance: QUETIAPINE FUMARATE
     Indication: PRODUCT USED FOR UNKNOWN INDICATION
     Dosage: 50 MG, 1X/DAY:QD
     Route: 048

REACTIONS (7)
  - Pulmonary embolism [Unknown]
  - Thrombosis [Unknown]
  - Catheter site erythema [Recovered/Resolved]
  - Pain [Recovered/Resolved]
  - Pyrexia [Recovered/Resolved]
  - Prescribed overdose [Not Recovered/Not Resolved]
  - Hereditary angioedema [Recovered/Resolved]

NARRATIVE: CASE EVENT DATE: 2014
